FAERS Safety Report 11891984 (Version 3)
Quarter: 2016Q3

REPORT INFORMATION
  Report Type: Report from Study
  Country: AR (occurrence: AR)
  Receive Date: 20160106
  Receipt Date: 20160930
  Transmission Date: 20161109
  Serious: Yes (Hospitalization, Other)
  Sender: FDA-Public Use
  Company Number: AR-ABBVIE-16P-007-1531001-00

PATIENT
  Age: 62 Year
  Sex: Female

DRUGS (2)
  1. ZEMPLAR [Suspect]
     Active Substance: PARICALCITOL
     Indication: HYPERPARATHYROIDISM SECONDARY
     Route: 042
     Dates: start: 20150102
  2. ZEMPLAR [Suspect]
     Active Substance: PARICALCITOL
     Route: 042
     Dates: start: 20160801

REACTIONS (4)
  - Bone pain [Unknown]
  - Bone loss [Unknown]
  - Parathyroid disorder [Recovering/Resolving]
  - Gait disturbance [Unknown]

NARRATIVE: CASE EVENT DATE: 201507
